FAERS Safety Report 6441756-6 (Version None)
Quarter: 2009Q4

REPORT INFORMATION
  Report Type: 
  Country: None (occurrence: None)
  Receive Date: 20091113
  Receipt Date: 20091113
  Transmission Date: 20100525
  Serious: No
  Sender: FDA-Public Use
  Company Number: None

PATIENT
  Age: 50 Year
  Sex: Male
  Weight: 119.75 kg

DRUGS (1)
  1. GEMFIBROZIL [Suspect]
     Indication: HYPERLIPIDAEMIA
     Dosage: 600 MG AT BEDTIME PO
     Route: 048
     Dates: start: 20090222, end: 20090701

REACTIONS (1)
  - BLOOD CREATINE PHOSPHOKINASE INCREASED [None]
